FAERS Safety Report 6188486-6 (Version None)
Quarter: 2009Q2

REPORT INFORMATION
  Report Type: 
  Country: None (occurrence: None)
  Receive Date: 20090513
  Receipt Date: 20090430
  Transmission Date: 20091009
  Serious: Yes (Disabling)
  Sender: FDA-Public Use
  Company Number: FR-PFIZER INC-2009205720

PATIENT
  Sex: Male

DRUGS (3)
  1. SUTENT [Suspect]
     Dosage: 50 MG, 1X/DAY
     Route: 048
     Dates: start: 20061026, end: 20070801
  2. DERMOVAL [Concomitant]
  3. TRIFLUCAN [Concomitant]

REACTIONS (4)
  - DERMATITIS ACNEIFORM [None]
  - MOUTH ULCERATION [None]
  - PALMAR-PLANTAR ERYTHRODYSAESTHESIA SYNDROME [None]
  - SECONDARY HYPOTHYROIDISM [None]
